FAERS Safety Report 19896449 (Version 2)
Quarter: 2021Q3

REPORT INFORMATION
  Report Type: Spontaneous
  Country: US (occurrence: US)
  Receive Date: 20210929
  Receipt Date: 20210929
  Transmission Date: 20211014
  Serious: Yes (Hospitalization)
  Sender: FDA-Public Use
  Company Number: US-CELGENEUS-USA-20210905637

PATIENT
  Age: 61 Year
  Sex: Female

DRUGS (1)
  1. IDHIFA [Suspect]
     Active Substance: ENASIDENIB MESYLATE
     Indication: ACUTE MYELOID LEUKAEMIA
     Dosage: 100 MILLIGRAM
     Route: 048
     Dates: start: 20210811

REACTIONS (6)
  - Rectal haemorrhage [Unknown]
  - Pyrexia [Unknown]
  - Dyspnoea [Unknown]
  - Vaginal haemorrhage [Unknown]
  - Pulmonary mass [Unknown]
  - Incoherent [Unknown]

NARRATIVE: CASE EVENT DATE: 20210920
